FAERS Safety Report 17946285 (Version 1)
Quarter: 2020Q2

REPORT INFORMATION
  Report Type: Spontaneous
  Country: JP (occurrence: JP)
  Receive Date: 20200625
  Receipt Date: 20200625
  Transmission Date: 20200714
  Serious: Yes (Death, Other)
  Sender: FDA-Public Use
  Company Number: JP-FRESENIUS KABI-FK202006397

PATIENT
  Age: 78 Year
  Sex: Male

DRUGS (7)
  1. POMALIDOMIDE [Suspect]
     Active Substance: POMALIDOMIDE
     Indication: CHEMOTHERAPY
     Route: 065
  2. DARATUMUMAB [Suspect]
     Active Substance: DARATUMUMAB
     Indication: CHEMOTHERAPY
     Route: 065
  3. DEXAMETHASONE INJECTION (MANUFACTURER UNKNOWN) [Suspect]
     Active Substance: DEXAMETHASONE
     Indication: CHEMOTHERAPY
     Route: 065
  4. BORTEZOMIB (MANUFACTURER UNKNOWN) [Suspect]
     Active Substance: BORTEZOMIB
     Indication: CHEMOTHERAPY
     Route: 065
  5. CYCLOPHOSPHAMIDE. [Suspect]
     Active Substance: CYCLOPHOSPHAMIDE
     Indication: CHEMOTHERAPY
     Route: 065
  6. LENALIDOMIDE [Suspect]
     Active Substance: LENALIDOMIDE
     Indication: CHEMOTHERAPY
     Route: 065
  7. DEXAMETHASONE INJECTION (MANUFACTURER UNKNOWN) [Suspect]
     Active Substance: DEXAMETHASONE
     Dosage: FROM DAY 243
     Route: 065

REACTIONS (6)
  - Disease progression [Fatal]
  - Decreased appetite [Not Recovered/Not Resolved]
  - Enteritis infectious [Not Recovered/Not Resolved]
  - Clostridium difficile colitis [Not Recovered/Not Resolved]
  - Diverticulitis [Not Recovered/Not Resolved]
  - Drug resistance [Unknown]
